FAERS Safety Report 18719641 (Version 4)
Quarter: 2021Q2

REPORT INFORMATION
  Report Type: Report from Study
  Country: US (occurrence: US)
  Receive Date: 20210109
  Receipt Date: 20210422
  Transmission Date: 20210717
  Serious: No
  Sender: FDA-Public Use
  Company Number: NVSC2021US003430

PATIENT
  Sex: Female

DRUGS (1)
  1. PIQRAY [Suspect]
     Active Substance: ALPELISIB
     Indication: BREAST CANCER METASTATIC
     Dosage: 300 MG, QD
     Route: 048

REACTIONS (8)
  - Alopecia [Not Recovered/Not Resolved]
  - Faeces soft [Recovering/Resolving]
  - Dyspepsia [Recovered/Resolved]
  - Abnormal faeces [Recovering/Resolving]
  - Fatigue [Not Recovered/Not Resolved]
  - Gastrointestinal sounds abnormal [Recovering/Resolving]
  - Urine odour abnormal [Recovering/Resolving]
  - Tumour marker increased [Unknown]
